FAERS Safety Report 12413557 (Version 1)
Quarter: 2016Q2

REPORT INFORMATION
  Report Type: Spontaneous
  Country: US (occurrence: US)
  Receive Date: 20160527
  Receipt Date: 20160527
  Transmission Date: 20160815
  Serious: Yes (Other)
  Sender: FDA-Public Use
  Company Number: US-PFIZER INC-2016260401

PATIENT
  Age: 45 Year
  Sex: Male
  Weight: 65.76 kg

DRUGS (1)
  1. OXYMETAZOLINE [Suspect]
     Active Substance: OXYMETAZOLINE
     Indication: NASAL CONGESTION
     Dosage: UNK

REACTIONS (2)
  - Sleep apnoea syndrome [Recovering/Resolving]
  - Rebound effect [Recovering/Resolving]
